FAERS Safety Report 6760566-3 (Version None)
Quarter: 2010Q2

REPORT INFORMATION
  Report Type: 
  Country: None (occurrence: None)
  Receive Date: 20100608
  Receipt Date: 20100527
  Transmission Date: 20101027
  Serious: Yes (Other)
  Sender: FDA-Public Use
  Company Number: US-PFIZER INC-2010067184

PATIENT
  Sex: Female
  Weight: 63.5 kg

DRUGS (2)
  1. DEPO-ESTRADIOL [Suspect]
     Indication: MENOPAUSE
     Dosage: 5 MG, UNK
     Dates: start: 20100225, end: 20100101
  2. AMBIEN [Concomitant]
     Indication: SLEEP DISORDER
     Dosage: 10 MG, 1X/DAY
     Route: 048

REACTIONS (13)
  - AGEUSIA [None]
  - CONSTIPATION [None]
  - DRY EYE [None]
  - DRY THROAT [None]
  - EYE IRRITATION [None]
  - EYE PRURITUS [None]
  - EYE SWELLING [None]
  - FALL [None]
  - FEELING ABNORMAL [None]
  - FLUID RETENTION [None]
  - INFECTION [None]
  - SWELLING [None]
  - VULVOVAGINAL DISCOMFORT [None]
